FAERS Safety Report 8171264-6 (Version None)
Quarter: 2012Q1

REPORT INFORMATION
  Report Type: 
  Country: None (occurrence: None)
  Receive Date: 20120228
  Receipt Date: 20120214
  Transmission Date: 20120608
  Serious: Yes (Hospitalization, Other)
  Sender: FDA-Public Use
  Company Number: PHHY2009NO35821

PATIENT
  Age: 37 Year
  Sex: Male

DRUGS (13)
  1. CERTICAN [Suspect]
     Indication: RENAL TRANSPLANT
     Dosage: UNK UKN, UNK
  2. PREDNISOLONE [Concomitant]
     Indication: RENAL TRANSPLANT
     Dosage: 7.5 MG, UNK
     Dates: start: 20051001
  3. METHYLPREDNISOLONE [Concomitant]
     Dosage: UNK UKN, UNK
     Route: 042
  4. MYCOPHENOLATE MOFETIL [Concomitant]
     Dosage: 500 MG, BID
     Dates: start: 20051001
  5. BELATACEPT [Concomitant]
     Dosage: 10 MG/KG, UNK
  6. BASILIXIMAB [Concomitant]
     Dosage: 20 MG, UNK
     Route: 042
     Dates: start: 20080101
  7. BASILIXIMAB [Concomitant]
     Indication: RENAL TRANSPLANT
     Dosage: UNK UKN, UNK
     Route: 042
     Dates: start: 20051001
  8. BELATACEPT [Concomitant]
     Indication: RENAL TRANSPLANT
     Dosage: 10 MG/KG, UNK
     Dates: start: 20080101
  9. BASILIXIMAB [Concomitant]
     Dosage: UNK UKN, UNK
     Dates: start: 20080101
  10. BELATACEPT [Concomitant]
     Dosage: 10 MG/KG, UNK
  11. TACROLIMUS [Suspect]
     Indication: RENAL TRANSPLANT
     Dosage: UNK UKN, UNK
  12. RAPAMUNE [Suspect]
     Indication: RENAL TRANSPLANT
     Dosage: UNK UKN, UNK
     Dates: start: 20051001
  13. BELATACEPT [Concomitant]
     Dosage: 5 MG/KG EVERY FOUR WEEK
     Route: 042

REACTIONS (5)
  - HAEMOLYTIC URAEMIC SYNDROME [None]
  - DISEASE RECURRENCE [None]
  - DRUG INTOLERANCE [None]
  - RENAL GRAFT LOSS [None]
  - BLOOD CREATININE INCREASED [None]
